FAERS Safety Report 8115731-X (Version None)
Quarter: 2012Q1

REPORT INFORMATION
  Report Type: 
  Country: None (occurrence: None)
  Receive Date: 20120112
  Receipt Date: 20111209
  Transmission Date: 20120608
  Serious: Yes (Other)
  Sender: FDA-Public Use
  Company Number: 2011027813

PATIENT
  Age: 63 Year
  Sex: Female
  Weight: 67.1324 kg

DRUGS (25)
  1. SYMBICORT [Concomitant]
  2. HIZENTRA [Suspect]
  3. HIZENTRA [Suspect]
  4. KLONOPIN [Concomitant]
  5. PERCOCET [Concomitant]
  6. FLUTICASONE PROP (FLUTICASONE) [Concomitant]
  7. XOPENEX HFA (LEVOSALBUTAMOL) [Concomitant]
  8. HIZENTRA [Suspect]
     Indication: IMMUNODEFICIENCY COMMON VARIABLE
     Dosage: (5 G 1X/WEEK, INFUSED 25 ML VIA MULTIPLE SITES SUBCUTANEOUS)
     Route: 058
     Dates: start: 20110303
  9. HIZENTRA [Suspect]
     Indication: IMMUNODEFICIENCY COMMON VARIABLE
     Dosage: (5 G 1X/WEEK, INFUSED 25 ML VIA MULTIPLE SITES SUBCUTANEOUS)
     Route: 058
     Dates: start: 20110303
  10. HIZENTRA [Suspect]
     Indication: IMMUNODEFICIENCY COMMON VARIABLE
     Dosage: (5 G 1X/WEEK, INFUSED 25 ML VIA MULTIPLE SITES SUBCUTANEOUS)
     Route: 058
     Dates: start: 20110909, end: 20110909
  11. HIZENTRA [Suspect]
     Indication: IMMUNODEFICIENCY COMMON VARIABLE
     Dosage: (5 G 1X/WEEK, INFUSED 25 ML VIA MULTIPLE SITES SUBCUTANEOUS)
     Route: 058
     Dates: start: 20110909, end: 20110909
  12. HIZENTRA [Suspect]
  13. PHENERGAN [Concomitant]
  14. OBETROL [Concomitant]
  15. CYMBALTA [Concomitant]
  16. ZYRTEC [Concomitant]
  17. MUCINEX [Concomitant]
  18. VERAPAMIL ER (VERAPAMIL) [Concomitant]
  19. IBUPROFEN (ADVIL) [Concomitant]
  20. PREVACID [Concomitant]
  21. IMITREX [Concomitant]
  22. LESCOL XL [Concomitant]
  23. FLEXERIL [Concomitant]
  24. THYROID TAB [Concomitant]
  25. CRESTOR [Concomitant]

REACTIONS (7)
  - INFUSION SITE PAIN [None]
  - HYPOTENSION [None]
  - HEADACHE [None]
  - ARTHRALGIA [None]
  - PAIN IN EXTREMITY [None]
  - NAUSEA [None]
  - HYPOAESTHESIA [None]
